FAERS Safety Report 15075421 (Version 1)
Quarter: 2018Q2

REPORT INFORMATION
  Report Type: Report from Study
  Country: US (occurrence: US)
  Receive Date: 20180627
  Receipt Date: 20180627
  Transmission Date: 20180711
  Serious: No
  Sender: FDA-Public Use
  Company Number: US-SAOL THERAPEUTICS-2018SAO00584

PATIENT
  Age: 55 Year

DRUGS (3)
  1. BACLOFEN. [Suspect]
     Active Substance: BACLOFEN
     Dosage: 15.47 ?G, \DAY
     Route: 037
     Dates: start: 20170621
  2. CLONIDINE. [Suspect]
     Active Substance: CLONIDINE
     Dosage: 9.285 ?G, \DAY
     Route: 037
     Dates: start: 20170621
  3. BUPIVACAINE. [Suspect]
     Active Substance: BUPIVACAINE
     Dosage: 3.095 MG, \DAY
     Route: 037
     Dates: start: 20170621

REACTIONS (1)
  - Implant site extravasation [Not Recovered/Not Resolved]

NARRATIVE: CASE EVENT DATE: 20171213
